FAERS Safety Report 17252168 (Version 2)
Quarter: 2020Q1

REPORT INFORMATION
  Report Type: Spontaneous
  Country: US (occurrence: US)
  Receive Date: 20200109
  Receipt Date: 20200115
  Transmission Date: 20200409
  Serious: Yes (Life-Threatening)
  Sender: FDA-Public Use
  Company Number: US-PFIZER INC-2020003728

PATIENT
  Age: 39 Year
  Sex: Female

DRUGS (2)
  1. LEVOTHYROXINE SODIUM. [Suspect]
     Active Substance: LEVOTHYROXINE SODIUM
     Dosage: UNK (LOWERING HER LEVOTHYROXINE)
  2. LEVOTHYROXINE SODIUM. [Suspect]
     Active Substance: LEVOTHYROXINE SODIUM
     Dosage: 175 UG, DAILY (HIGHER DOSE)

REACTIONS (2)
  - Hyperthyroidism [Recovered/Resolved]
  - Hypokalaemic syndrome [Recovered/Resolved]
